FAERS Safety Report 11769203 (Version 1)
Quarter: 2015Q4

REPORT INFORMATION
  Report Type: Report from Study
  Country: NL (occurrence: NL)
  Receive Date: 20151123
  Receipt Date: 20151123
  Transmission Date: 20160304
  Serious: Yes (Hospitalization)
  Sender: FDA-Public Use
  Company Number: US-ASTRAZENECA-2015SF03815

PATIENT
  Age: 101 Day
  Sex: Male
  Weight: 4.4 kg

DRUGS (1)
  1. SYNAGIS [Suspect]
     Active Substance: PALIVIZUMAB
     Indication: PREMATURE BABY
     Dosage: LIQUID 100MG/1ML / 15 MG/KG BODY WEIGHT, MONTHLY
     Route: 030
     Dates: start: 20151020

REACTIONS (5)
  - Urinary tract infection [Recovered/Resolved]
  - Listless [Not Recovered/Not Resolved]
  - Erythema [Not Recovered/Not Resolved]
  - Pyrexia [Not Recovered/Not Resolved]
  - Pyelonephritis [Not Recovered/Not Resolved]

NARRATIVE: CASE EVENT DATE: 20151020
